FAERS Safety Report 18195521 (Version 2)
Quarter: 2020Q3

REPORT INFORMATION
  Report Type: Report from Study
  Country: None (occurrence: BR)
  Receive Date: 20200826
  Receipt Date: 20200827
  Transmission Date: 20201103
  Serious: Yes (Hospitalization)
  Sender: FDA-Public Use
  Company Number: BR-ABBVIE-20K-020-3536417-00

PATIENT
  Age: 35 Year
  Sex: Female
  Weight: 68 kg

DRUGS (11)
  1. PREGABALIN. [Concomitant]
     Active Substance: PREGABALIN
     Indication: POLYNEUROPATHY
     Route: 048
  2. ETNA [Concomitant]
     Active Substance: UNSPECIFIED INGREDIENT
     Indication: POLYNEUROPATHY
     Route: 048
  3. DONAREN RETARD [Concomitant]
     Active Substance: TRAZODONE HYDROCHLORIDE
     Indication: PAIN
     Dosage: ONCE AT NIGHT
     Route: 048
  4. HUMIRA [Suspect]
     Active Substance: ADALIMUMAB
     Indication: RHEUMATOID ARTHRITIS
     Route: 058
     Dates: start: 20200713
  5. PREGABALIN. [Concomitant]
     Active Substance: PREGABALIN
     Indication: AUTOIMMUNE DISORDER
  6. PREGABALIN. [Concomitant]
     Active Substance: PREGABALIN
     Indication: PAIN
  7. PATZ [Concomitant]
     Indication: INSOMNIA
     Dosage: DEPENDS ON THE PAIN, SOMETIMES 1, 2, OR 3 TABLETS
     Route: 048
  8. SELOZOK [Concomitant]
     Active Substance: METOPROLOL SUCCINATE
     Indication: TACHYCARDIA
     Route: 048
  9. LONIUM [Concomitant]
     Active Substance: OTILONIUM BROMIDE
     Indication: IRRITABLE BOWEL SYNDROME
     Route: 048
  10. MUSCULARE [Concomitant]
     Indication: MUSCLE RELAXANT THERAPY
     Dosage: ONCE BEFORE SLEEP
     Route: 048
  11. PANTOPRAZOLE [Concomitant]
     Active Substance: PANTOPRAZOLE
     Indication: GASTRITIS
     Dosage: 1 TABLET AT FASTING
     Route: 048

REACTIONS (9)
  - Pain in extremity [Unknown]
  - Polyneuropathy [Not Recovered/Not Resolved]
  - Pain [Unknown]
  - Asthenia [Unknown]
  - Swelling [Not Recovered/Not Resolved]
  - Joint swelling [Not Recovered/Not Resolved]
  - Muscular weakness [Unknown]
  - Joint range of motion decreased [Unknown]
  - Peripheral swelling [Not Recovered/Not Resolved]

NARRATIVE: CASE EVENT DATE: 2020
